FAERS Safety Report 10684651 (Version 1)
Quarter: 2014Q4

REPORT INFORMATION
  Report Type: Spontaneous
  Country: JP (occurrence: JP)
  Receive Date: 20141231
  Receipt Date: 20141231
  Transmission Date: 20150529
  Serious: Yes (Other)
  Sender: FDA-Public Use
  Company Number: PHHY2014JP168617

PATIENT
  Age: 53 Year
  Sex: Male

DRUGS (2)
  1. CEFCAPENE PIVOXIL [Concomitant]
     Active Substance: CEFCAPENE PIVOXIL
     Indication: PROSTATITIS
     Route: 065
  2. PARACETAMOL [Suspect]
     Active Substance: ACETAMINOPHEN
     Indication: PROSTATITIS
     Route: 065

REACTIONS (4)
  - Drug eruption [Unknown]
  - Leukocytosis [Unknown]
  - Rash [Unknown]
  - Erythema [Recovered/Resolved]
